FAERS Safety Report 4545206-6 (Version None)
Quarter: 2005Q1

REPORT INFORMATION
  Report Type: 
  Country: None (occurrence: None)
  Receive Date: 20050103
  Receipt Date: 20050103
  Transmission Date: 20050727
  Serious: Yes (Other)
  Sender: FDA-Public Use
  Company Number: None

PATIENT
  Sex: Female

DRUGS (2)
  1. BACTRIM DS [Suspect]
     Indication: BRUCELLOSIS
     Dosage: 1 TAB DS PO BID 3 DOSES
     Route: 048
  2. BACTRIM DS [Suspect]
     Indication: EXPOSURE TO COMMUNICABLE DISEASE
     Dosage: 1 TAB DS PO BID 3 DOSES
     Route: 048

REACTIONS (3)
  - NAUSEA [None]
  - VERTIGO [None]
  - VOMITING [None]
